FAERS Safety Report 5253097-3 (Version None)
Quarter: 2007Q1

REPORT INFORMATION
  Report Type: 
  Country: None (occurrence: None)
  Receive Date: 20070301
  Receipt Date: 20070223
  Transmission Date: 20070707
  Serious: Yes (Hospitalization)
  Sender: FDA-Public Use
  Company Number: NL-JNJFOC-20070105815

PATIENT
  Sex: Male

DRUGS (7)
  1. INFLIXIMAB, RECOMBINANT [Suspect]
     Indication: ANKYLOSING SPONDYLITIS
     Route: 042
  2. INFLIXIMAB, RECOMBINANT [Suspect]
     Indication: IDIOPATHIC PULMONARY FIBROSIS
     Route: 042
  3. PARACETAMOL [Concomitant]
     Route: 048
  4. ARCOXIA [Concomitant]
     Route: 048
  5. ACETAMINOPHEN W/ CODEINE [Concomitant]
     Route: 048
  6. SULFASALAZINE [Concomitant]
     Route: 048
  7. ETORICOXIB [Concomitant]
     Route: 048

REACTIONS (3)
  - HEADACHE [None]
  - INFUSION RELATED REACTION [None]
  - PHOTOPHOBIA [None]
